FAERS Safety Report 6196475-0 (Version None)
Quarter: 2009Q2

REPORT INFORMATION
  Report Type: 
  Country: None (occurrence: None)
  Receive Date: 20090520
  Receipt Date: 20090507
  Transmission Date: 20091009
  Serious: Yes (Hospitalization)
  Sender: FDA-Public Use
  Company Number: FR-JNJFOC-20090501945

PATIENT
  Sex: Male
  Weight: 75 kg

DRUGS (7)
  1. TMC125 [Suspect]
     Indication: HIV INFECTION
     Route: 048
  2. PREZISTA [Suspect]
     Indication: HIV INFECTION
     Route: 048
  3. NORVIR [Suspect]
     Indication: HIV INFECTION
     Route: 048
  4. ISENTRESS [Suspect]
     Indication: HIV INFECTION
     Route: 065
  5. TRUVADA [Suspect]
     Indication: HIV INFECTION
     Route: 065
  6. AERIUS [Concomitant]
     Indication: HYPERSENSITIVITY
     Route: 065
  7. LIPANTHYL [Concomitant]
     Indication: DYSLIPIDAEMIA
     Route: 065

REACTIONS (1)
  - MYOCARDIAL ISCHAEMIA [None]
